FAERS Safety Report 6126090-6 (Version None)
Quarter: 2009Q1

REPORT INFORMATION
  Report Type: 
  Country: None (occurrence: None)
  Receive Date: 20090320
  Receipt Date: 20090305
  Transmission Date: 20090719
  Serious: Yes (Other)
  Sender: FDA-Public Use
  Company Number: FR-GENENTECH-279265

PATIENT
  Age: 45 Year
  Sex: Male

DRUGS (1)
  1. MABTHERA [Suspect]
     Indication: EXTRANODAL MARGINAL ZONE B-CELL LYMPHOMA (MALT TYPE)
     Dosage: UNK
     Route: 042
     Dates: start: 20090220

REACTIONS (2)
  - OEDEMA PERIPHERAL [None]
  - PETECHIAE [None]
